FAERS Safety Report 14588715 (Version 3)
Quarter: 2019Q2

REPORT INFORMATION
  Report Type: Spontaneous
  Country: CZ (occurrence: CZ)
  Receive Date: 20180301
  Receipt Date: 20190520
  Transmission Date: 20190711
  Serious: Yes (Other)
  Sender: FDA-Public Use
  Company Number: CZ-GLAXOSMITHKLINE-CZ2018029589

PATIENT
  Age: 28 Year
  Sex: Female

DRUGS (9)
  1. VALPROATE [Suspect]
     Active Substance: VALPROIC ACID
     Dosage: 2X 750 MG
     Route: 048
  2. LAMOTRIGINE. [Concomitant]
     Active Substance: LAMOTRIGINE
     Indication: GENERALISED TONIC-CLONIC SEIZURE
     Dosage: 2 X 150 MG
     Route: 065
  3. PERAMPANEL [Concomitant]
     Active Substance: PERAMPANEL
     Indication: PRODUCT USED FOR UNKNOWN INDICATION
     Dosage: 6 MG, QD
     Route: 065
  4. LEVETIRACETAM. [Suspect]
     Active Substance: LEVETIRACETAM
     Indication: EPILEPSY
     Dosage: 2X 500 MG
     Route: 065
  5. LAMOTRIGINE. [Suspect]
     Active Substance: LAMOTRIGINE
     Indication: EPILEPSY CONGENITAL
     Dosage: 2X 150 MG
     Route: 048
  6. VALPROATE SODIUM. [Suspect]
     Active Substance: VALPROATE SODIUM
     Indication: EPILEPSY
     Dosage: 250 MG, BID
     Route: 048
  7. LACOSAMIDE. [Suspect]
     Active Substance: LACOSAMIDE
     Indication: EPILEPSY
     Dosage: 2X 150 MG
     Route: 065
  8. LAMOTRIGINE. [Concomitant]
     Active Substance: LAMOTRIGINE
     Indication: SEIZURE
  9. VALPROATE [Suspect]
     Active Substance: VALPROIC ACID
     Indication: EPILEPSY
     Dosage: 2X 1000 MG
     Route: 048

REACTIONS (11)
  - Seizure [Recovered/Resolved]
  - Weight increased [Recovered/Resolved]
  - Nausea [Unknown]
  - Tremor [Recovered/Resolved]
  - Tremor [Unknown]
  - Hepatic enzyme increased [Recovered/Resolved]
  - Lipids abnormal [Recovered/Resolved]
  - Generalised tonic-clonic seizure [Recovered/Resolved]
  - Dizziness [Unknown]
  - Therapeutic product effect incomplete [Unknown]
  - Headache [Recovered/Resolved]
